FAERS Safety Report 9913552 (Version 1)
Quarter: 2014Q1

REPORT INFORMATION
  Report Type: Spontaneous
  Country: US (occurrence: US)
  Receive Date: 20140220
  Receipt Date: 20140220
  Transmission Date: 20141002
  Serious: Yes (Hospitalization)
  Sender: FDA-Public Use
  Company Number: US-NOVOPROD-400174

PATIENT
  Age: 61 Year
  Sex: Male
  Weight: 90.7 kg

DRUGS (3)
  1. VICTOZA [Suspect]
     Indication: TYPE 2 DIABETES MELLITUS
     Dosage: UNKNOWN
     Route: 058
     Dates: start: 2012, end: 201401
  2. LANTUS [Concomitant]
     Indication: TYPE 2 DIABETES MELLITUS
  3. NOVOLOG [Concomitant]
     Indication: TYPE 2 DIABETES MELLITUS

REACTIONS (1)
  - Pancreatic carcinoma [Not Recovered/Not Resolved]
